FAERS Safety Report 7223100-X (Version None)
Quarter: 2011Q1

REPORT INFORMATION
  Report Type: 
  Country: None (occurrence: None)
  Receive Date: 20110112
  Receipt Date: 20100119
  Transmission Date: 20110831
  Serious: No
  Sender: FDA-Public Use
  Company Number: US-ALLERGAN-1000633US

PATIENT
  Age: 66 Year
  Sex: Male

DRUGS (3)
  1. RESTASIS [Suspect]
     Dosage: 1 GTT, UNK
     Route: 047
     Dates: start: 20100119
  2. MULTI-VITAMINS [Concomitant]
  3. RESTASIS [Suspect]
     Indication: DRY EYE
     Dosage: 1 GTT, BID
     Route: 047
     Dates: start: 20100105, end: 20100116

REACTIONS (2)
  - URTICARIA [None]
  - PRURITUS [None]
